FAERS Safety Report 9242455 (Version 2)
Quarter: 2013Q2

REPORT INFORMATION
  Report Type: Spontaneous
  Country: US (occurrence: US)
  Receive Date: 20130419
  Receipt Date: 20130426
  Transmission Date: 20140414
  Serious: Yes (Hospitalization)
  Sender: FDA-Public Use
  Company Number: US-PFIZER INC-2013120457

PATIENT
  Age: 56 Year
  Sex: Female
  Weight: 51 kg

DRUGS (2)
  1. LEVOXYL [Suspect]
     Indication: THYROID DISORDER
     Dosage: UNK
     Route: 048
  2. ALPRAZOLAM [Concomitant]
     Dosage: ONE TABLET IN AFTERNOON/TWO TABLETS AT BEDTIME
     Route: 048

REACTIONS (1)
  - Tachycardia [Unknown]
